FAERS Safety Report 18227498 (Version 2)
Quarter: 2025Q3

REPORT INFORMATION
  Report Type: Report from Study
  Country: US (occurrence: US)
  Receive Date: 20200903
  Receipt Date: 20250716
  Transmission Date: 20251020
  Serious: Yes (Other)
  Sender: ALEXION PHARMACEUTICALS
  Company Number: 2019SE53827

PATIENT
  Age: 12 Year
  Sex: Male
  Weight: 33.1 kg

DRUGS (4)
  1. SELUMETINIB [Suspect]
     Active Substance: SELUMETINIB
     Indication: Neurofibromatosis
     Dosage: BID (BSA ADJUSTED)
     Dates: start: 20181220
  2. CLINDAMYCIN [Concomitant]
     Active Substance: CLINDAMYCIN
     Dosage: QHS (1 APPLICATION)
     Dates: start: 20190113
  3. DOXYCYCLINE [Concomitant]
     Active Substance: DOXYCYCLINE
     Dosage: 20 MILLIGRAM, BID
     Dates: start: 20190113
  4. ERYTHROMYCIN [Concomitant]
     Active Substance: ERYTHROMYCIN
     Dosage: TID (3 APPLICATIONS)
     Dates: start: 20181227

REACTIONS (13)
  - Blood creatine phosphokinase increased [Not Recovered/Not Resolved]
  - Haematuria [Not Recovered/Not Resolved]
  - Aspartate aminotransferase increased [Not Recovered/Not Resolved]
  - Hyperkalaemia [Recovered/Resolved]
  - Blood bilirubin increased [Recovered/Resolved]
  - Blood alkaline phosphatase increased [Recovered/Resolved]
  - Hypernatraemia [Recovered/Resolved]
  - Seborrhoeic dermatitis [Recovered/Resolved]
  - Molluscum contagiosum [Recovered/Resolved]
  - Anaemia [Recovered/Resolved]
  - Eczema [Recovered/Resolved]
  - Hypocalcaemia [Not Recovered/Not Resolved]
  - Folliculitis [Recovered/Resolved]

NARRATIVE: CASE EVENT DATE: 20190115
